FAERS Safety Report 7083924-9 (Version None)
Quarter: 2010Q4

REPORT INFORMATION
  Report Type: 
  Country: None (occurrence: None)
  Receive Date: 20101104
  Receipt Date: 20100208
  Transmission Date: 20110411
  Serious: Yes (Other)
  Sender: FDA-Public Use
  Company Number: US-ABBOTT-10P-163-0624899-00

PATIENT
  Sex: Male
  Weight: 69.008 kg

DRUGS (6)
  1. KALETRA [Suspect]
     Indication: HIV INFECTION
     Dosage: 200MG/50MG  2 TABLETS BID
     Dates: start: 20070101
  2. RIBOVARIN [Suspect]
     Indication: HEPATITIS C
     Dates: start: 20091101
  3. PEGASYS [Suspect]
     Indication: HEPATITIS C
     Dates: start: 20091101
  4. ZIAGEN [Concomitant]
     Indication: HIV INFECTION
  5. EPIVIR [Concomitant]
     Indication: HIV INFECTION
  6. BACTRIM [Concomitant]
     Indication: HIV INFECTION

REACTIONS (5)
  - ABDOMINAL DISCOMFORT [None]
  - ABDOMINAL PAIN [None]
  - DECREASED APPETITE [None]
  - NEPHROLITHIASIS [None]
  - WEIGHT DECREASED [None]
